APPROVED DRUG PRODUCT: SODIUM CHLORIDE 0.9%
Active Ingredient: SODIUM CHLORIDE
Strength: 180MG/20ML (9MG/ML)
Dosage Form/Route: SOLUTION;INJECTION
Application: A217535 | Product #002 | TE Code: AP
Applicant: NEXUS PHARMACEUTICALS LLC
Approved: Aug 23, 2023 | RLD: No | RS: No | Type: RX